FAERS Safety Report 6401231-1 (Version None)
Quarter: 2009Q4

REPORT INFORMATION
  Report Type: 
  Country: None (occurrence: None)
  Receive Date: 20091015
  Receipt Date: 20091008
  Transmission Date: 20100525
  Serious: Yes (Hospitalization)
  Sender: FDA-Public Use
  Company Number: FR-ROCHE-661818

PATIENT
  Age: 81 Year
  Sex: Female

DRUGS (2)
  1. BONIVA [Suspect]
     Indication: OSTEOPOROSIS
     Route: 048
     Dates: start: 20090201, end: 20090701
  2. LANZOR [Concomitant]
     Indication: PROPHYLAXIS

REACTIONS (2)
  - GASTRIC ULCER [None]
  - MELAENA [None]
